FAERS Safety Report 8533729 (Version 5)
Quarter: 2013Q1

REPORT INFORMATION
  Report Type: Spontaneous
  Country: JP (occurrence: JP)
  Receive Date: 20120427
  Receipt Date: 20130128
  Transmission Date: 20140127
  Serious: Yes (Other)
  Sender: FDA-Public Use
  Company Number: JP-JNJFOC-20120410413

PATIENT
  Age: 87 Year
  Sex: Female

DRUGS (1)
  1. ITRIZOLE [Suspect]
     Indication: ONYCHOMYCOSIS
     Dosage: AS 7 DAY PULSE THERAPY, 8 CAPSULES ONCE IN MORNING AND ONCE IN EVENING AFTER MEALS
     Route: 048
     Dates: start: 20120316, end: 20120322

REACTIONS (5)
  - Rheumatoid factor positive [Recovering/Resolving]
  - C-reactive protein increased [Recovering/Resolving]
  - Arthralgia [Recovering/Resolving]
  - Back pain [Recovering/Resolving]
  - Pain in extremity [Recovering/Resolving]
